FAERS Safety Report 23213363 (Version 1)
Quarter: 2023Q4

REPORT INFORMATION
  Report Type: Spontaneous
  Country: BR (occurrence: BR)
  Receive Date: 20231121
  Receipt Date: 20231121
  Transmission Date: 20240109
  Serious: Yes (Hospitalization, Other)
  Sender: FDA-Public Use
  Company Number: BR-JNJFOC-20231138160

PATIENT
  Age: 62 Year
  Sex: Female

DRUGS (2)
  1. SIMPONI [Suspect]
     Active Substance: GOLIMUMAB
     Indication: Rheumatoid arthritis
     Dosage: 0.5ML IN A DOSAGE OF 1 MONTHLY APPLICATION
     Route: 058
     Dates: start: 20211201
  2. SIMPONI [Suspect]
     Active Substance: GOLIMUMAB

REACTIONS (1)
  - Nervousness [Unknown]

NARRATIVE: CASE EVENT DATE: 20231112
